FAERS Safety Report 8502217-3 (Version None)
Quarter: 2012Q2

REPORT INFORMATION
  Report Type: 
  Country: None (occurrence: None)
  Receive Date: 20120405
  Receipt Date: 20100607
  Transmission Date: 20120825
  Serious: Yes (Other)
  Sender: FDA-Public Use
  Company Number: PHHY2010US29998

PATIENT
  Sex: Female

DRUGS (1)
  1. RECLAST [Suspect]
     Indication: OSTEOPOROSIS
     Dosage: INTRAVENOUS
     Route: 042

REACTIONS (6)
  - THROMBOSIS [None]
  - INCORRECT ROUTE OF DRUG ADMINISTRATION [None]
  - INFUSION SITE PAIN [None]
  - INFUSION SITE SWELLING [None]
  - INCORRECT DRUG ADMINISTRATION RATE [None]
  - VEIN DISCOLOURATION [None]
